FAERS Safety Report 7605324-2 (Version None)
Quarter: 2011Q3

REPORT INFORMATION
  Report Type: 
  Country: None (occurrence: None)
  Receive Date: 20110705
  Receipt Date: 20110621
  Transmission Date: 20111222
  Serious: Yes (Hospitalization)
  Sender: FDA-Public Use
  Company Number: 1000021820

PATIENT
  Age: 79 Year
  Sex: Female

DRUGS (1)
  1. MEMANTINE HYDROCHLORIDE [Suspect]
     Indication: DEMENTIA

REACTIONS (3)
  - DIET REFUSAL [None]
  - APATHY [None]
  - CONFUSIONAL STATE [None]
